FAERS Safety Report 8504032-3 (Version None)
Quarter: 2012Q3

REPORT INFORMATION
  Report Type: 
  Country: None (occurrence: None)
  Receive Date: 20120711
  Receipt Date: 20120704
  Transmission Date: 20120928
  Serious: Yes (Hospitalization)
  Sender: FDA-Public Use
  Company Number: DE-ELI_LILLY_AND_COMPANY-DE201207001790

PATIENT
  Age: 68 Year
  Sex: Female

DRUGS (3)
  1. EFFIENT [Suspect]
     Indication: ACUTE CORONARY SYNDROME
     Dosage: 60 MG, ONE TIME DOSE
     Route: 048
     Dates: start: 20101225, end: 20101225
  2. EFFIENT [Suspect]
     Dosage: 10 MG, QD
     Route: 048
     Dates: start: 20101226
  3. ASPIRIN [Concomitant]

REACTIONS (3)
  - IN-STENT CORONARY ARTERY RESTENOSIS [None]
  - ANGINA PECTORIS [None]
  - CORONARY ARTERY STENOSIS [None]
